FAERS Safety Report 6357069-7 (Version None)
Quarter: 2009Q3

REPORT INFORMATION
  Report Type: 
  Country: None (occurrence: None)
  Receive Date: 20090910
  Receipt Date: 20090831
  Transmission Date: 20100115
  Serious: No
  Sender: FDA-Public Use
  Company Number: 2009010075

PATIENT
  Sex: Male

DRUGS (5)
  1. FENTORA [Suspect]
     Indication: COMPLEX REGIONAL PAIN SYNDROME
     Dosage: (600 MCG),BU
     Route: 002
  2. FENTORA [Suspect]
     Indication: INTERVERTEBRAL DISC DEGENERATION
     Dosage: (600 MCG),BU
     Route: 002
  3. FENTORA [Suspect]
     Indication: NECK PAIN
     Dosage: (600 MCG),BU
     Route: 002
  4. KADIAN [Concomitant]
  5. DILAUDID [Concomitant]

REACTIONS (1)
  - DRUG PRESCRIBING ERROR [None]
